FAERS Safety Report 9176554 (Version 1)
Quarter: 2013Q1

REPORT INFORMATION
  Report Type: Report from Study
  Country: CA (occurrence: CA)
  Receive Date: 20130321
  Receipt Date: 20130321
  Transmission Date: 20140127
  Serious: Yes (Other)
  Sender: FDA-Public Use
  Company Number: CA-JNJFOC-20130306179

PATIENT
  Sex: Male
  Weight: 82 kg

DRUGS (2)
  1. REMICADE [Suspect]
     Indication: COLITIS ULCERATIVE
     Dosage: THERAPY DURATION 2 HRS
     Route: 042
     Dates: start: 20130308
  2. REMICADE [Suspect]
     Indication: COLITIS ULCERATIVE
     Dosage: 24TH INFUSION
     Route: 042

REACTIONS (2)
  - Weight decreased [Unknown]
  - Colitis ulcerative [Unknown]
